FAERS Safety Report 8887706 (Version 1)
Quarter: 2012Q4

REPORT INFORMATION
  Report Type: Spontaneous
  Country: IT (occurrence: None)
  Receive Date: 20121031
  Receipt Date: 20121031
  Transmission Date: 20130627
  Serious: Yes (Other)
  Sender: FDA-Public Use
  Company Number: 1461035

PATIENT
  Age: 65 Year
  Sex: Female
  Weight: 43 kg

DRUGS (4)
  1. OXALIPLATIN [Suspect]
     Indication: COLON CANCER
     Dosage: 85 NG/M2 MILLIGRAM(S)/SQ. METER [CYCLICAL]
     Route: 042
     Dates: start: 20120607, end: 20120810
  2. OXALIPLATIN [Suspect]
     Indication: COLON CANCER
     Dosage: 85 NG/M2 MILLIGRAM(S)/SQ. METER [CYCLICAL]
  3. FLUOROURACIL [Suspect]
     Indication: COLON CANCER
     Dosage: 3000 NG/M2 MILLIGRAM(S) SQ. METER [cYCLICAL]
     Route: 042
     Dates: start: 20120607, end: 20120810
  4. ERBOTIX [Concomitant]

REACTIONS (2)
  - Asthenia [None]
  - Vomiting [None]
